FAERS Safety Report 5380184-1 (Version None)
Quarter: 2007Q3

REPORT INFORMATION
  Report Type: 
  Country: None (occurrence: None)
  Receive Date: 20070706
  Receipt Date: 20070509
  Transmission Date: 20080115
  Serious: No
  Sender: FDA-Public Use
  Company Number: A0650607A

PATIENT
  Age: 47 Year
  Sex: Female

DRUGS (2)
  1. TYKERB [Suspect]
     Indication: BREAST CANCER
     Dosage: 1250MG PER DAY
     Route: 048
     Dates: start: 20070420
  2. XELODA [Concomitant]

REACTIONS (4)
  - EAR PRURITUS [None]
  - ERYTHEMA [None]
  - RASH [None]
  - RASH PRURITIC [None]
